FAERS Safety Report 24826726 (Version 1)
Quarter: 2025Q1

REPORT INFORMATION
  Report Type: Spontaneous
  Country: US (occurrence: US)
  Receive Date: 20250109
  Receipt Date: 20250109
  Transmission Date: 20250409
  Serious: No
  Sender: COOPERSURGICAL
  Company Number: US-COOPERSURGICAL, INC.-US-2024CPS000479

PATIENT
  Age: 34 Year
  Sex: Female
  Weight: 68.934 kg

DRUGS (7)
  1. PARAGARD T 380A [Suspect]
     Active Substance: COPPER
     Indication: Contraception
     Route: 015
     Dates: start: 20240119, end: 20240213
  2. KEPPRA [Concomitant]
     Active Substance: LEVETIRACETAM
     Indication: Product used for unknown indication
     Route: 065
  3. SYNTHROID [Concomitant]
     Active Substance: LEVOTHYROXINE SODIUM
     Indication: Product used for unknown indication
     Route: 065
  4. INSULIN NOS [Concomitant]
     Active Substance: INSULIN NOS
     Indication: Product used for unknown indication
     Route: 065
  5. LAMOTRIGINE [Concomitant]
     Active Substance: LAMOTRIGINE
     Indication: Product used for unknown indication
     Route: 065
  6. LAMOTRIGINE [Concomitant]
     Active Substance: LAMOTRIGINE
     Route: 065
  7. HYDROXYCHLOROQUINE [Concomitant]
     Active Substance: HYDROXYCHLOROQUINE
     Indication: Product used for unknown indication
     Route: 065

REACTIONS (1)
  - Device expulsion [Recovered/Resolved]

NARRATIVE: CASE EVENT DATE: 20240213
